FAERS Safety Report 4895366-2 (Version None)
Quarter: 2006Q1

REPORT INFORMATION
  Report Type: 
  Country: None (occurrence: None)
  Receive Date: 20060130
  Receipt Date: 20051222
  Transmission Date: 20060701
  Serious: Yes (Death, Hospitalization, Disabling, Other)
  Sender: FDA-Public Use
  Company Number: US-MERCK-0512USA03628

PATIENT
  Age: 64 Year
  Sex: Male
  Weight: 102 kg

DRUGS (2)
  1. VIOXX [Suspect]
     Indication: ARTHRALGIA
     Route: 048
     Dates: start: 20010101, end: 20031201
  2. VIOXX [Suspect]
     Indication: BONE PAIN
     Route: 048
     Dates: start: 20010101, end: 20031201

REACTIONS (5)
  - CARDIAC DISORDER [None]
  - CHRONIC OBSTRUCTIVE PULMONARY DISEASE [None]
  - LUNG NEOPLASM MALIGNANT [None]
  - MYOCARDIAL INFARCTION [None]
  - NON-HODGKIN'S LYMPHOMA [None]
